FAERS Safety Report 9156918 (Version 2)
Quarter: 2013Q2

REPORT INFORMATION
  Report Type: Spontaneous
  Country: BR (occurrence: BR)
  Receive Date: 20130312
  Receipt Date: 20130416
  Transmission Date: 20140414
  Serious: Yes (Other)
  Sender: FDA-Public Use
  Company Number: PHHY2013BR023574

PATIENT
  Sex: Female
  Weight: 69 kg

DRUGS (4)
  1. ACLASTA [Suspect]
     Indication: OSTEOPOROSIS
     Dosage: 5 MG, PER YEAR
     Route: 042
     Dates: start: 2011
  2. PONDERA [Concomitant]
     Indication: PANIC DISORDER
     Dosage: 1 DF, 1 TABLET (10MG) DAILY
     Route: 048
  3. PONDERA [Concomitant]
     Indication: ANXIETY
  4. VIVACOR//ROSUVASTATIN CALCIUM [Concomitant]
     Indication: BLOOD CHOLESTEROL ABNORMAL
     Dosage: 5 MG, 1 TABLET DAILY
     Route: 048

REACTIONS (2)
  - Foot fracture [Recovered/Resolved]
  - Fall [Recovered/Resolved]
